FAERS Safety Report 10792455 (Version 1)
Quarter: 2015Q1

REPORT INFORMATION
  Report Type: Spontaneous
  Country: US (occurrence: US)
  Receive Date: 20150213
  Receipt Date: 20150213
  Transmission Date: 20150721
  Serious: Yes (Other)
  Sender: FDA-Public Use
  Company Number: US-CELGENE-USA-2015020229

PATIENT

DRUGS (6)
  1. REVLIMID [Suspect]
     Active Substance: LENALIDOMIDE
     Indication: PROSTATE CANCER METASTATIC
     Route: 048
  2. REVLIMID [Suspect]
     Active Substance: LENALIDOMIDE
     Route: 048
  3. REVLIMID [Suspect]
     Active Substance: LENALIDOMIDE
     Route: 048
  4. CYCLOPHOSPHAMIDE. [Suspect]
     Active Substance: CYCLOPHOSPHAMIDE
     Indication: PROSTATE CANCER METASTATIC
     Route: 048
  5. REVLIMID [Suspect]
     Active Substance: LENALIDOMIDE
     Route: 048
  6. ASPIRIN. [Concomitant]
     Active Substance: ASPIRIN
     Indication: THROMBOSIS PROPHYLAXIS
     Dosage: 81 OR 325MG
     Route: 065

REACTIONS (36)
  - Lower respiratory tract infection [Unknown]
  - Hyponatraemia [Unknown]
  - Oedema [Unknown]
  - Thrombocytopenia [Unknown]
  - Chest pain [Unknown]
  - Hyperglycaemia [Unknown]
  - Rash [Unknown]
  - Diarrhoea [Unknown]
  - Constipation [Unknown]
  - Hypotension [Unknown]
  - Headache [Unknown]
  - Hypokalaemia [Unknown]
  - Blood creatinine increased [Unknown]
  - Anaemia [Unknown]
  - Pyrexia [Unknown]
  - Hypophosphataemia [Unknown]
  - Cough [Unknown]
  - Pain in extremity [Unknown]
  - Hypoalbuminaemia [Unknown]
  - Aspartate aminotransferase increased [Unknown]
  - Decreased appetite [Unknown]
  - Dysgeusia [Unknown]
  - Leukopenia [Unknown]
  - Neutropenia [Unknown]
  - Hypocalcaemia [Unknown]
  - Back pain [Unknown]
  - Dyspnoea [Unknown]
  - Lymphopenia [Unknown]
  - Nausea [Unknown]
  - Blood alkaline phosphatase increased [Unknown]
  - Hyperkalaemia [Unknown]
  - Dehydration [Unknown]
  - Vomiting [Unknown]
  - Fatigue [Unknown]
  - Upper respiratory tract infection [Unknown]
  - Infection [Unknown]
